FAERS Safety Report 10200710 (Version 2)
Quarter: 2014Q2

REPORT INFORMATION
  Report Type: Spontaneous
  Country: DE (occurrence: DE)
  Receive Date: 20140528
  Receipt Date: 20140613
  Transmission Date: 20141212
  Serious: Yes (Other)
  Sender: FDA-Public Use
  Company Number: DE-BRISTOL-MYERS SQUIBB COMPANY-20785200

PATIENT
  Age: 49 Year
  Sex: Female

DRUGS (3)
  1. LITALIR [Suspect]
     Indication: CHRONIC MYELOID LEUKAEMIA
  2. INTERFERON [Suspect]
     Indication: CHRONIC MYELOID LEUKAEMIA
  3. THIOGUANINE [Concomitant]

REACTIONS (1)
  - Cytogenetic analysis abnormal [Unknown]
